FAERS Safety Report 15461369 (Version 1)
Quarter: 2018Q4

REPORT INFORMATION
  Report Type: Spontaneous
  Country: BY (occurrence: BY)
  Receive Date: 20181003
  Receipt Date: 20181003
  Transmission Date: 20190204
  Serious: Yes (Hospitalization, Other)
  Sender: FDA-Public Use
  Company Number: BY-AKRON, INC.-2055654

PATIENT
  Age: 29 Year
  Sex: Female
  Weight: 52 kg

DRUGS (1)
  1. CAPASTAT SULFATE [Suspect]
     Active Substance: CAPREOMYCIN SULFATE
     Indication: PULMONARY TUBERCULOSIS
     Route: 042
     Dates: start: 20180117, end: 20180606

REACTIONS (9)
  - Endocarditis [Unknown]
  - Chronic hepatitis C [Unknown]
  - HIV infection [Unknown]
  - Cardiac failure [Unknown]
  - Alcohol poisoning [Unknown]
  - Personality disorder [Unknown]
  - Hypertension [Unknown]
  - Suicide attempt [Unknown]
  - Aggression [Unknown]

NARRATIVE: CASE EVENT DATE: 20180606
